FAERS Safety Report 8454494-5 (Version None)
Quarter: 2012Q2

REPORT INFORMATION
  Report Type: 
  Country: None (occurrence: None)
  Receive Date: 20120621
  Receipt Date: 20120612
  Transmission Date: 20120825
  Serious: No
  Sender: FDA-Public Use
  Company Number: US-BIOGENIDEC-2012BI021021

PATIENT
  Age: 46 Year
  Sex: Male

DRUGS (1)
  1. TYSABRI [Suspect]
     Indication: MULTIPLE SCLEROSIS
     Route: 042
     Dates: start: 20110811

REACTIONS (7)
  - DECREASED APPETITE [None]
  - DISABILITY [None]
  - DEHYDRATION [None]
  - MUSCULOSKELETAL STIFFNESS [None]
  - SYNCOPE [None]
  - FATIGUE [None]
  - NASOPHARYNGITIS [None]
